FAERS Safety Report 5832037-X (Version None)
Quarter: 2008Q3

REPORT INFORMATION
  Report Type: 
  Country: None (occurrence: None)
  Receive Date: 20080804
  Receipt Date: 20080514
  Transmission Date: 20090109
  Serious: No
  Sender: FDA-Public Use
  Company Number: US-BAYER-200823312NA

PATIENT
  Sex: Female

DRUGS (1)
  1. MIRENA [Suspect]
     Indication: DRUG USE FOR UNKNOWN INDICATION
     Route: 015
     Dates: start: 20080509, end: 20080513

REACTIONS (5)
  - DEVICE BREAKAGE [None]
  - HYPOAESTHESIA [None]
  - PAIN IN EXTREMITY [None]
  - PARAESTHESIA [None]
  - PELVIC PAIN [None]
